FAERS Safety Report 19463390 (Version 1)
Quarter: 2021Q2

REPORT INFORMATION
  Report Type: Report from Study
  Country: DE (occurrence: DE)
  Receive Date: 20210625
  Receipt Date: 20210625
  Transmission Date: 20210717
  Serious: Yes (Hospitalization)
  Sender: FDA-Public Use
  Company Number: DE-MYLANLABS-2021M1036892

PATIENT
  Age: 83 Year
  Sex: Female
  Weight: 62 kg

DRUGS (2)
  1. KISQALI [Suspect]
     Active Substance: RIBOCICLIB
     Indication: BREAST CANCER METASTATIC
     Dosage: 600 MILLIGRAM, QD (600 MG, QD (DAILY DOSE) (21 DAYS INTAKE, 7 DAYS PAUSE))
     Route: 048
     Dates: start: 20201124
  2. LETROZOLE. [Suspect]
     Active Substance: LETROZOLE
     Indication: BREAST CANCER METASTATIC
     Dosage: 2.5 MILLIGRAM, QD (2.5 MG, QD (DAILY DOSE))
     Route: 048
     Dates: start: 20201124

REACTIONS (4)
  - Diarrhoea [Recovered/Resolved]
  - Malignant pleural effusion [Recovering/Resolving]
  - Dyspnoea exertional [Recovering/Resolving]
  - Fatigue [Not Recovered/Not Resolved]

NARRATIVE: CASE EVENT DATE: 20201202
